FAERS Safety Report 16927160 (Version 1)
Quarter: 2019Q4

REPORT INFORMATION
  Report Type: Spontaneous
  Country: CA (occurrence: CA)
  Receive Date: 20191016
  Receipt Date: 20191016
  Transmission Date: 20200122
  Serious: Yes (Hospitalization)
  Sender: FDA-Public Use
  Company Number: CA-TEVA-2019-CA-1122128

PATIENT
  Age: 81 Year
  Sex: Female

DRUGS (16)
  1. LEVOTHYROXINE SODIUM. [Concomitant]
     Active Substance: LEVOTHYROXINE SODIUM
  2. TRIAMTERENE. [Concomitant]
     Active Substance: TRIAMTERENE
  3. OXYGEN. [Concomitant]
     Active Substance: OXYGEN
  4. RISEDRONATE [Concomitant]
     Active Substance: RISEDRONATE SODIUM
  5. SILDENAFIL CITRATE. [Suspect]
     Active Substance: SILDENAFIL CITRATE
     Indication: PULMONARY HYPERTENSION
     Dosage: 60 MILLIGRAM DAILY;
     Route: 048
  6. CRESTOR [Concomitant]
     Active Substance: ROSUVASTATIN CALCIUM
  7. INDACATEROL MALEATE [Concomitant]
     Active Substance: INDACATEROL MALEATE
  8. UPTRAVI [Concomitant]
     Active Substance: SELEXIPAG
  9. OXAZEPAM. [Concomitant]
     Active Substance: OXAZEPAM
  10. VITAMINE C [Concomitant]
     Active Substance: ASCORBIC ACID
  11. AMLODIPINE [Concomitant]
     Active Substance: AMLODIPINE BESYLATE
  12. BOSENTAN MONOHYDRATE [Concomitant]
     Active Substance: BOSENTAN
  13. PREVACID [Concomitant]
     Active Substance: LANSOPRAZOLE
  14. VITAMIN D [ERGOCALCIFEROL] [Concomitant]
     Active Substance: ERGOCALCIFEROL
  15. GABAPENTIN. [Concomitant]
     Active Substance: GABAPENTIN
  16. OPSUMIT [Concomitant]
     Active Substance: MACITENTAN

REACTIONS (5)
  - Pneumonia [Not Recovered/Not Resolved]
  - Malaise [Not Recovered/Not Resolved]
  - Myalgia [Not Recovered/Not Resolved]
  - Diarrhoea [Not Recovered/Not Resolved]
  - Fatigue [Not Recovered/Not Resolved]
